FAERS Safety Report 4953089-5 (Version None)
Quarter: 2006Q1

REPORT INFORMATION
  Report Type: 
  Country: None (occurrence: None)
  Receive Date: 20060324
  Receipt Date: 20060315
  Transmission Date: 20060701
  Serious: Yes (Other)
  Sender: FDA-Public Use
  Company Number: JP-AVENTIS-200610838JP

PATIENT
  Age: 50 Year
  Sex: Male

DRUGS (1)
  1. TAXOTERE [Suspect]
     Indication: OESOPHAGEAL CARCINOMA
     Dosage: DOSE: 80 MG/BODY
     Route: 041
     Dates: start: 20050101

REACTIONS (1)
  - PERICARDIAL EFFUSION [None]
